FAERS Safety Report 15427492 (Version 2)
Quarter: 2018Q4

REPORT INFORMATION
  Report Type: Spontaneous
  Country: US (occurrence: US)
  Receive Date: 20180925
  Receipt Date: 20181003
  Transmission Date: 20190204
  Serious: Yes (Other)
  Sender: FDA-Public Use
  Company Number: US-SHIRE-US201836196

PATIENT
  Sex: Male

DRUGS (2)
  1. GATTEX [Suspect]
     Active Substance: TEDUGLUTIDE\WATER
     Indication: CROHN^S DISEASE
     Dosage: 1.47 MG, 1X/DAY:QD
     Route: 058
     Dates: start: 20180517
  2. GATTEX [Suspect]
     Active Substance: TEDUGLUTIDE\WATER
     Dosage: 0.29 UNK, UNK
     Route: 065
     Dates: start: 20180619

REACTIONS (3)
  - Conjunctivitis [Not Recovered/Not Resolved]
  - Eyelid margin crusting [Unknown]
  - Cataract [Not Recovered/Not Resolved]
